FAERS Safety Report 4389089-6 (Version None)
Quarter: 2004Q2

REPORT INFORMATION
  Report Type: 
  Country: None (occurrence: None)
  Receive Date: 20040628
  Receipt Date: 20040624
  Transmission Date: 20050107
  Serious: Yes (Death)
  Sender: FDA-Public Use
  Company Number: US-SHR-03-12473

PATIENT
  Age: 43 Year
  Sex: Male

DRUGS (9)
  1. BETASERON [Suspect]
     Indication: MULTIPLE SCLEROSIS
     Dosage: 2 MIU, EVERY 2D, SUBCUTANEOUS
     Route: 058
     Dates: start: 20030801, end: 20030803
  2. ASPIRIN [Concomitant]
  3. ZOCOR [Concomitant]
  4. PLAVIX [Concomitant]
  5. INSULIN [Concomitant]
  6. ^IBOBAIDE^ [Concomitant]
  7. LISINOPRIL [Concomitant]
  8. METOPROLOL (METOPROLOL) [Concomitant]
  9. NORVASC [Concomitant]

REACTIONS (2)
  - CARDIAC ARREST [None]
  - CHEST DISCOMFORT [None]
